FAERS Safety Report 18485419 (Version 1)
Quarter: 2020Q4

REPORT INFORMATION
  Report Type: Spontaneous
  Country: US (occurrence: US)
  Receive Date: 20201110
  Receipt Date: 20201110
  Transmission Date: 20210114
  Serious: No
  Sender: FDA-Public Use
  Company Number: None

PATIENT
  Age: 54 Year
  Sex: Male
  Weight: 92.34 kg

DRUGS (1)
  1. GLUCAGON NASAL SPRAY [Suspect]
     Active Substance: GLUCAGON
     Indication: HYPOGLYCAEMIA

REACTIONS (5)
  - Rhinalgia [None]
  - Sinus pain [None]
  - Device issue [None]
  - Respiratory tract inflammation [None]
  - Paraesthesia [None]

NARRATIVE: CASE EVENT DATE: 20200911
